FAERS Safety Report 10027093 (Version 2)
Quarter: 2014Q1

REPORT INFORMATION
  Report Type: Spontaneous
  Country: US (occurrence: US)
  Receive Date: 20140321
  Receipt Date: 20140321
  Transmission Date: 20141002
  Serious: No
  Sender: FDA-Public Use
  Company Number: US-MYLANLABS-2013S1005625

PATIENT
  Age: 57 Year
  Sex: Female
  Weight: 136.08 kg

DRUGS (1)
  1. ESTRADIOL TRANSDERMAL SYSTEM, USP [Suspect]
     Dosage: CHANGE Q WEEKLY
     Route: 062
     Dates: start: 201212

REACTIONS (2)
  - Application site erythema [Not Recovered/Not Resolved]
  - Application site odour [Not Recovered/Not Resolved]
